FAERS Safety Report 25962136 (Version 1)
Quarter: 2025Q4

REPORT INFORMATION
  Report Type: Spontaneous
  Country: US (occurrence: None)
  Receive Date: 20251024
  Receipt Date: 20251024
  Transmission Date: 20260117
  Serious: Yes (Life-Threatening, Hospitalization)
  Sender: FDA-CTU
  Company Number: None

PATIENT
  Age: 49 Year
  Sex: Female
  Weight: 60.75 kg

DRUGS (10)
  1. CYCLOBENZAPRINE [Suspect]
     Active Substance: CYCLOBENZAPRINE
     Indication: Muscle spasms
     Dosage: OTHER QUANTITY : 30 TABLET(S);?FREQUENCY : AS NEEDED;?
     Route: 048
  2. SUMATRIPTAN [Suspect]
     Active Substance: SUMATRIPTAN
     Indication: Migraine
     Dosage: OTHER QUANTITY : 9 TABLET(S);?FREQUENCY : AS NEEDED;?
     Route: 048
  3. GABAPENTIN [Suspect]
     Active Substance: GABAPENTIN
  4. CELECOXIB [Suspect]
     Active Substance: CELECOXIB
  5. BACLOFEN [Suspect]
     Active Substance: BACLOFEN
  6. ACETAMINOPHEN [Suspect]
     Active Substance: ACETAMINOPHEN
  7. Sumatriptan 50mg tablets prn [Concomitant]
  8. Magnesium Probiotic w/ cranberry [Concomitant]
  9. Plant based estrogen [Concomitant]
  10. PROGESTERONE [Concomitant]
     Active Substance: PROGESTERONE

REACTIONS (7)
  - Myalgia [None]
  - Rebound effect [None]
  - Tremor [None]
  - Migraine [None]
  - Hypertension [None]
  - Blood potassium decreased [None]
  - Inflammation [None]

NARRATIVE: CASE EVENT DATE: 20251023
